FAERS Safety Report 12381459 (Version 1)
Quarter: 2016Q2

REPORT INFORMATION
  Report Type: Spontaneous
  Country: US (occurrence: None)
  Receive Date: 20160517
  Receipt Date: 20160517
  Transmission Date: 20160815
  Serious: Yes (Death)
  Sender: FDA-Public Use
  Company Number: None

PATIENT
  Age: 46 Year
  Sex: Female
  Weight: 41.2 kg

DRUGS (8)
  1. PACLITAXEL INJECTION [Suspect]
     Active Substance: PACLITAXEL
     Indication: CHEMOTHERAPY
     Route: 042
     Dates: start: 20160309, end: 20160309
  2. ISONIAZID. [Concomitant]
     Active Substance: ISONIAZID
  3. EFAVIRENZ/EMTRICITABINE/TENOFOVIR DF [Suspect]
     Active Substance: EFAVIRENZ\EMTRICITABINE\TENOFOVIR DISOPROXIL FUMARATE
     Indication: ANTIRETROVIRAL THERAPY
     Dosage: 200/300/600 MG EVERYDAY ORAL
     Route: 048
     Dates: start: 20160309, end: 20160416
  4. RIFAMPICIN [Concomitant]
     Active Substance: RIFAMPIN
  5. PYRAZINAMIDE. [Concomitant]
     Active Substance: PYRAZINAMIDE
  6. CO-TRIMOXAZOLE (TRIMETHOPRIM/SULFAMETHOXAZOLE) [Concomitant]
  7. ETHAMBUTOL [Concomitant]
     Active Substance: ETHAMBUTOL HYDROCHLORIDE
  8. SAFERON (FOLIC ACID/IRON) [Concomitant]

REACTIONS (13)
  - Pallor [None]
  - Blood sodium increased [None]
  - Dehydration [None]
  - Malaise [None]
  - Diarrhoea [None]
  - Haemoglobin decreased [None]
  - Blood potassium decreased [None]
  - Cachexia [None]
  - Blood bicarbonate decreased [None]
  - Gait disturbance [None]
  - Hypotension [None]
  - Decreased appetite [None]
  - Lethargy [None]

NARRATIVE: CASE EVENT DATE: 20160407
